FAERS Safety Report 9893875 (Version 1)
Quarter: 2014Q1

REPORT INFORMATION
  Report Type: Spontaneous
  Country: US (occurrence: ES)
  Receive Date: 20140213
  Receipt Date: 20140213
  Transmission Date: 20141002
  Serious: Yes (Other)
  Sender: FDA-Public Use
  Company Number: ES-FRI-1000054190

PATIENT
  Age: 78 Year
  Sex: Male

DRUGS (5)
  1. ROFLUMILAST [Suspect]
     Indication: BRONCHITIS CHRONIC
     Dosage: 500 MCG
     Route: 048
     Dates: start: 20110402, end: 20140121
  2. SALBUTAMOL ALDO UNION [Concomitant]
     Dosage: 100 MCG
     Dates: start: 20110401
  3. ATROVENT [Concomitant]
     Dosage: 20 MCG
     Dates: start: 20100610
  4. ATORVASTATINA NORMON [Concomitant]
     Dosage: 10 MG
     Dates: start: 20110401
  5. ALOPURINOL NORMON [Concomitant]
     Dosage: 100 MG
     Dates: start: 20110402

REACTIONS (1)
  - Colon neoplasm [Recovered/Resolved]
